FAERS Safety Report 14172884 (Version 2)
Quarter: 2017Q4

REPORT INFORMATION
  Report Type: Spontaneous
  Country: IN (occurrence: IN)
  Receive Date: 20171109
  Receipt Date: 20171109
  Transmission Date: 20180321
  Serious: No
  Sender: FDA-Public Use
  Company Number: IN-LUPIN PHARMACEUTICALS INC.-E2B_00006988

PATIENT
  Age: 39 Year
  Sex: Female

DRUGS (1)
  1. CEFAXONE [Suspect]
     Active Substance: CEFTRIAXONE
     Indication: INJECTION SITE INJURY
     Dosage: 1 G,QD,
     Route: 065
     Dates: start: 20161220, end: 20161220

REACTIONS (4)
  - Vomiting [Recovered/Resolved]
  - Pruritus generalised [Recovered/Resolved]
  - Self-medication [Unknown]
  - Blister [Recovered/Resolved]

NARRATIVE: CASE EVENT DATE: 20161220
